FAERS Safety Report 21290908 (Version 5)
Quarter: 2022Q4

REPORT INFORMATION
  Report Type: Spontaneous
  Country: CA (occurrence: CA)
  Receive Date: 20220903
  Receipt Date: 20221210
  Transmission Date: 20230113
  Serious: Yes (Other)
  Sender: FDA-Public Use
  Company Number: CA-CELLTRION INC.-2022CA010699

PATIENT

DRUGS (6)
  1. INFLECTRA [Suspect]
     Active Substance: INFLIXIMAB-DYYB
     Indication: Psoriatic arthropathy
     Dosage: 500 MG, Q 0,2,6 (W 0, W2, W6), THEN EVERY 8 WEEKS
     Route: 042
     Dates: start: 20220530
  2. INFLECTRA [Suspect]
     Active Substance: INFLIXIMAB-DYYB
     Dosage: 500 MG, Q 0,2,6, THEN EVERY 8 WEEKS
     Route: 042
     Dates: start: 20220615
  3. INFLECTRA [Suspect]
     Active Substance: INFLIXIMAB-DYYB
     Dosage: 500 MG, Q 0,2,6, THEN EVERY 8 WEEKS(LAST DOSE OF INDUCTION W6)
     Route: 042
     Dates: start: 20220720
  4. INFLECTRA [Suspect]
     Active Substance: INFLIXIMAB-DYYB
     Dosage: 500 MG, EVERY 6 WEEKS
     Route: 042
  5. INFLECTRA [Suspect]
     Active Substance: INFLIXIMAB-DYYB
     Dosage: 500MG EVERY 6 WEEKS(Q6 WEEKS )
     Route: 042
     Dates: start: 20220903
  6. INFLECTRA [Suspect]
     Active Substance: INFLIXIMAB-DYYB
     Dosage: 500MG EVERY 6 WEEKS
     Route: 042
     Dates: start: 20221017

REACTIONS (8)
  - Weight decreased [Unknown]
  - Suicidal ideation [Not Recovered/Not Resolved]
  - Off label use [Unknown]
  - Off label use [Unknown]
  - Mobility decreased [Not Recovered/Not Resolved]
  - Pain [Not Recovered/Not Resolved]
  - Dysstasia [Not Recovered/Not Resolved]
  - Poor venous access [Unknown]

NARRATIVE: CASE EVENT DATE: 20220101
